FAERS Safety Report 7964606-5 (Version None)
Quarter: 2011Q4

REPORT INFORMATION
  Report Type: 
  Country: None (occurrence: None)
  Receive Date: 20111121
  Receipt Date: 20111013
  Transmission Date: 20120403
  Serious: No
  Sender: FDA-Public Use
  Company Number: 1000024683

PATIENT
  Age: 59 Year
  Sex: Female

DRUGS (6)
  1. VALIUM [Concomitant]
  2. VISTARIL (HYDROXYZINE) (HYDROXYZINE) [Concomitant]
  3. VIIBRYD [Suspect]
     Indication: DEPRESSION
     Dosage: 10 MG (10 MG, 1 IN 1 D), ORAL 20 MG (20 MG, 1 IN 1 D), ORAL 40 MG (40 MG, 1 IN 1 D), ORAL
     Route: 048
     Dates: start: 20110101, end: 20110101
  4. VIIBRYD [Suspect]
     Indication: DEPRESSION
     Dosage: 10 MG (10 MG, 1 IN 1 D), ORAL 20 MG (20 MG, 1 IN 1 D), ORAL 40 MG (40 MG, 1 IN 1 D), ORAL
     Route: 048
     Dates: start: 20110101
  5. VIIBRYD [Suspect]
     Indication: DEPRESSION
     Dosage: 10 MG (10 MG, 1 IN 1 D), ORAL 20 MG (20 MG, 1 IN 1 D), ORAL 40 MG (40 MG, 1 IN 1 D), ORAL
     Route: 048
     Dates: start: 20110101, end: 20110101
  6. MUSCLE RELAXER NOS (MUSCLE RELAXER NOS) (MUSCLE RELAXER NOS) [Concomitant]

REACTIONS (1)
  - ARTHRALGIA [None]
